FAERS Safety Report 14832608 (Version 4)
Quarter: 2019Q3

REPORT INFORMATION
  Report Type: Spontaneous
  Country: US (occurrence: US)
  Receive Date: 20180501
  Receipt Date: 20190719
  Transmission Date: 20191004
  Serious: Yes (Hospitalization, Other)
  Sender: FDA-Public Use
  Company Number: US-GLAXOSMITHKLINE-US2018GSK076011

PATIENT
  Sex: Male

DRUGS (6)
  1. PREVACID [Suspect]
     Active Substance: LANSOPRAZOLE
     Indication: PRODUCT USED FOR UNKNOWN INDICATION
     Dosage: UNK
     Route: 065
  2. PANTOPRAZOLE [Suspect]
     Active Substance: PANTOPRAZOLE
     Indication: PRODUCT USED FOR UNKNOWN INDICATION
     Dosage: 40 MG, QD
     Route: 048
  3. PREVACID [Suspect]
     Active Substance: LANSOPRAZOLE
     Indication: GASTROOESOPHAGEAL REFLUX DISEASE
     Dosage: 15 MG, QD
     Route: 065
  4. PREVACID [Suspect]
     Active Substance: LANSOPRAZOLE
     Dosage: 30 MG, QD
     Route: 065
  5. PREVACID [Suspect]
     Active Substance: LANSOPRAZOLE
     Indication: PRODUCT USED FOR UNKNOWN INDICATION
     Dosage: 15 MG, QD
     Route: 048
  6. LANSOPRAZOLE. [Suspect]
     Active Substance: LANSOPRAZOLE
     Indication: GASTROOESOPHAGEAL REFLUX DISEASE
     Dosage: 15 MG, QD
     Route: 048

REACTIONS (18)
  - Chronic kidney disease [Not Recovered/Not Resolved]
  - Renal cyst [Unknown]
  - Tubulointerstitial nephritis [Not Recovered/Not Resolved]
  - Glomerulonephritis membranous [Unknown]
  - Urine abnormality [Unknown]
  - Renal impairment [Unknown]
  - Renal vein thrombosis [Unknown]
  - End stage renal disease [Unknown]
  - Renal failure [Unknown]
  - Nephropathy [Unknown]
  - Glomerulonephritis minimal lesion [Not Recovered/Not Resolved]
  - Nephrotic syndrome [Unknown]
  - Acute kidney injury [Not Recovered/Not Resolved]
  - Haemodialysis [Unknown]
  - Proteinuria [Unknown]
  - Glomerulonephritis [Unknown]
  - Dialysis [Unknown]
  - Haematuria [Unknown]
